FAERS Safety Report 20205054 (Version 2)
Quarter: 2025Q2

REPORT INFORMATION
  Report Type: Report from Study
  Country: FR (occurrence: FR)
  Receive Date: 20211220
  Receipt Date: 20250626
  Transmission Date: 20250717
  Serious: Yes (Hospitalization, Other)
  Sender: AUROBINDO
  Company Number: FR-SERVIER-S21013632

PATIENT
  Age: 61 Year
  Sex: Male

DRUGS (2)
  1. AMLODIPINE [Suspect]
     Active Substance: AMLODIPINE BESYLATE
     Indication: Product used for unknown indication
     Dosage: 450 MILLIGRAM, ONCE A DAY (TOTAL DOSE)
     Route: 065
  2. PERINDOPRIL [Suspect]
     Active Substance: PERINDOPRIL
     Indication: Product used for unknown indication
     Dosage: 450 MILLIGRAM, ONCE A DAY (TOTAL DOSE)
     Route: 065

REACTIONS (3)
  - Vasoplegia syndrome [Unknown]
  - Toxicity to various agents [Unknown]
  - Overdose [Unknown]

NARRATIVE: CASE EVENT DATE: 20210101
